FAERS Safety Report 24852447 (Version 1)
Quarter: 2025Q1

REPORT INFORMATION
  Report Type: Spontaneous
  Country: GR (occurrence: GR)
  Receive Date: 20250116
  Receipt Date: 20250116
  Transmission Date: 20250408
  Serious: Yes (Hospitalization)
  Sender: PFIZER
  Company Number: GR-ROCHE-10000169831

PATIENT
  Age: 74 Year
  Sex: Male
  Weight: 65 kg

DRUGS (5)
  1. OXALIPLATIN [Suspect]
     Active Substance: OXALIPLATIN
     Indication: Neoplasm
     Dosage: FREQ:21 WK;
     Route: 042
     Dates: start: 20240705
  2. CAPECITABINE [Suspect]
     Active Substance: CAPECITABINE
     Indication: Neoplasm
     Route: 048
  3. VECTIBIX [Suspect]
     Active Substance: PANITUMUMAB
     Indication: Neoplasm
     Dosage: FREQ:21 WK;
     Route: 042
     Dates: start: 20240729
  4. CIPROFLOXACIN [Concomitant]
     Active Substance: CIPROFLOXACIN
  5. METRONIDAZOLE [Concomitant]
     Active Substance: METRONIDAZOLE

REACTIONS (2)
  - Spontaneous bacterial peritonitis [Unknown]
  - C-reactive protein increased [Unknown]

NARRATIVE: CASE EVENT DATE: 20241223
